FAERS Safety Report 5694443-6 (Version None)
Quarter: 2008Q2

REPORT INFORMATION
  Report Type: 
  Country: None (occurrence: None)
  Receive Date: 20080404
  Receipt Date: 20080328
  Transmission Date: 20081010
  Serious: Yes (Death, Other)
  Sender: FDA-Public Use
  Company Number: PHEH2008US03248

PATIENT
  Age: 84 Year
  Sex: Male
  Weight: 69.841 kg

DRUGS (3)
  1. REVLIMID [Suspect]
     Indication: MULTIPLE MYELOMA
     Dosage: 20 MG DAILY X 21 DAYS/28 DAYS
     Dates: start: 20070101, end: 20071110
  2. ZOMETA [Suspect]
     Indication: METASTASES TO BONE
     Dosage: 2 MG EVERY FOUR WEEKS
     Dates: start: 20070201, end: 20071022
  3. ASPIRIN [Concomitant]
     Dosage: 325 MG, QD

REACTIONS (8)
  - ANAEMIA [None]
  - BLOOD COUNT ABNORMAL [None]
  - BLOOD CREATININE INCREASED [None]
  - BLOOD IMMUNOGLOBULIN A INCREASED [None]
  - FATIGUE [None]
  - HAEMATOCRIT DECREASED [None]
  - PLATELET COUNT DECREASED [None]
  - RENAL FAILURE [None]
